FAERS Safety Report 6253820-5 (Version None)
Quarter: 2009Q3

REPORT INFORMATION
  Report Type: 
  Country: None (occurrence: None)
  Receive Date: 20090702
  Receipt Date: 20090622
  Transmission Date: 20100115
  Serious: Yes (Other)
  Sender: FDA-Public Use
  Company Number: CA-RANBAXY-2009RR-25215

PATIENT
  Age: 66 Year
  Sex: Female

DRUGS (3)
  1. FLUOXETINE HCL [Suspect]
     Indication: DEPRESSION
     Dosage: 20 MG, UNK
  2. CHIPMAX [Suspect]
     Indication: SMOKING CESSATION THERAPY
  3. FLUOXETINE HCL [Concomitant]
     Dosage: 10 MG, UNK

REACTIONS (2)
  - DRUG INTERACTION [None]
  - TREMOR [None]
